FAERS Safety Report 9410666 (Version 4)
Quarter: 2014Q2

REPORT INFORMATION
  Report Type: Spontaneous
  Country: US (occurrence: US)
  Receive Date: 20130719
  Receipt Date: 20140623
  Transmission Date: 20141212
  Serious: Yes (Other)
  Sender: FDA-Public Use
  Company Number: US-UCBSA-091711

PATIENT
  Age: 46 Year
  Sex: Female

DRUGS (3)
  1. CIMZIA [Suspect]
     Indication: CROHN^S DISEASE
     Dosage: 200 MG, EV 2 WEEKS(QOW)
     Dates: start: 20090312, end: 20130708
  2. CIMZIA [Suspect]
     Dosage: 400 MG, EV 2 WEEKS(QOW)
     Dates: start: 20130813
  3. CIMZIA [Suspect]
     Dosage: 200 MG, EV 2 WEEKS(QOW)
     Dates: start: 20140107, end: 2014

REACTIONS (3)
  - Herpes zoster [Recovered/Resolved]
  - Urinary tract infection [Not Recovered/Not Resolved]
  - Inappropriate schedule of drug administration [Not Recovered/Not Resolved]
